FAERS Safety Report 4323327-0 (Version None)
Quarter: 2004Q1

REPORT INFORMATION
  Report Type: 
  Country: None (occurrence: None)
  Receive Date: 20040322
  Receipt Date: 20040316
  Transmission Date: 20041129
  Serious: Yes (Hospitalization)
  Sender: FDA-Public Use
  Company Number: A044-002-004903

PATIENT
  Age: 79 Year
  Sex: Female

DRUGS (6)
  1. ARICEPT [Suspect]
     Indication: DEMENTIA
     Dosage: 5 MG, 1 IN 1 D, ORAL
     Route: 048
     Dates: start: 20031201, end: 20040211
  2. NOOTROPYL (PIRACETAM) [Suspect]
     Dosage: 800 MG, ORAL
     Route: 048
  3. ATORVASTATIN CALCIUM [Suspect]
     Dosage: 40 MG, ORAL
     Route: 048
  4. ICAZ(ISRADIPINE) [Concomitant]
  5. DAFLON (DIOSMIN) [Concomitant]
  6. ISOPTIN [Concomitant]

REACTIONS (6)
  - BLOOD PRESSURE DECREASED [None]
  - BRADYCARDIA [None]
  - CONFUSIONAL STATE [None]
  - DYSARTHRIA [None]
  - GENERAL PHYSICAL HEALTH DETERIORATION [None]
  - HYPOTHERMIA [None]
